FAERS Safety Report 25769167 (Version 1)
Quarter: 2025Q3

REPORT INFORMATION
  Report Type: Spontaneous
  Country: JP (occurrence: JP)
  Receive Date: 20250905
  Receipt Date: 20250905
  Transmission Date: 20251021
  Serious: Yes (Other)
  Sender: AMGEN
  Company Number: JP-AMGEN-JPNSP2025174246

PATIENT
  Age: 7 Decade
  Sex: Female

DRUGS (1)
  1. IMDELLTRA [Suspect]
     Active Substance: TARLATAMAB-DLLE
     Indication: Small cell lung cancer
     Dosage: 1 MILLIGRAM, QD, INJECTION
     Route: 040

REACTIONS (5)
  - Cytokine release syndrome [Recovered/Resolved]
  - Delirium [Recovered/Resolved]
  - Taste disorder [Not Recovered/Not Resolved]
  - Malaise [Recovered/Resolved]
  - Chills [Recovered/Resolved]
